FAERS Safety Report 9057452 (Version 1)
Quarter: 2013Q1

REPORT INFORMATION
  Report Type: Spontaneous
  Country: DE (occurrence: DE)
  Receive Date: 20130204
  Receipt Date: 20130204
  Transmission Date: 20140127
  Serious: Yes (Other)
  Sender: FDA-Public Use
  Company Number: DE-ALLERGAN-1301327US

PATIENT
  Age: 40 Year
  Sex: Female

DRUGS (3)
  1. OZURDEX [Suspect]
     Indication: UVEITIS
     Dosage: 0.7 MG, SINGLE
     Route: 031
     Dates: start: 20121112, end: 20121112
  2. DECORTIN [Concomitant]
     Indication: UVEITIS
     Dosage: 5 MG, QD
  3. METHOTREXATE [Concomitant]
     Indication: PRODUCT USED FOR UNKNOWN INDICATION
     Dosage: UNK

REACTIONS (1)
  - Grand mal convulsion [Unknown]
